FAERS Safety Report 7094085-4 (Version None)
Quarter: 2010Q4

REPORT INFORMATION
  Report Type: 
  Country: None (occurrence: None)
  Receive Date: 20101109
  Receipt Date: 20101109
  Transmission Date: 20110411
  Serious: No
  Sender: FDA-Public Use
  Company Number: None

PATIENT
  Age: 60 Year
  Sex: Female
  Weight: 55.3388 kg

DRUGS (2)
  1. NOROXIN [Suspect]
     Indication: URINARY TRACT INFECTION
     Dosage: 250 DAILY PO
     Route: 048
     Dates: start: 19900101, end: 20001231
  2. CIPRO [Suspect]
     Indication: URINARY TRACT INFECTION
     Dosage: 250 QID PO
     Route: 048
     Dates: start: 20010101, end: 20081231

REACTIONS (2)
  - MUSCLE SPASMS [None]
  - TENDONITIS [None]
